FAERS Safety Report 7258662-X (Version None)
Quarter: 2011Q1

REPORT INFORMATION
  Report Type: 
  Country: None (occurrence: None)
  Receive Date: 20110129
  Receipt Date: 20100624
  Transmission Date: 20110831
  Serious: Yes (Hospitalization)
  Sender: FDA-Public Use
  Company Number: US-ABBOTT-09P-163-0601239-00

PATIENT
  Sex: Female
  Weight: 59.928 kg

DRUGS (10)
  1. HUMIRA [Suspect]
     Indication: RHEUMATOID ARTHRITIS
     Route: 058
     Dates: start: 20090707
  2. PREDNISONE [Concomitant]
  3. MULTIVITAMIN [Concomitant]
     Indication: VITAMIN SUPPLEMENTATION
     Route: 048
  4. PERCOCET [Concomitant]
  5. CYMBALTA [Concomitant]
  6. HUMIRA [Suspect]
     Route: 058
  7. PREDNISONE [Concomitant]
     Indication: RHEUMATOID ARTHRITIS
     Dosage: 3 IN 1 DAY ON AND OFF AS NEEDED
     Dates: start: 20040101
  8. CLONAZEPAM [Concomitant]
  9. KLONOPIN [Concomitant]
     Indication: TORTICOLLIS
     Route: 048
     Dates: start: 19890101
  10. SYNTHROID [Concomitant]

REACTIONS (12)
  - MUSCULOSKELETAL STIFFNESS [None]
  - FATIGUE [None]
  - NECK PAIN [None]
  - PAIN [None]
  - TORTICOLLIS [None]
  - ARTHRALGIA [None]
  - HEADACHE [None]
  - ASTHENIA [None]
  - CALCINOSIS [None]
  - DRUG DOSE OMISSION [None]
  - JOINT SWELLING [None]
  - OEDEMA PERIPHERAL [None]
